FAERS Safety Report 10024577 (Version 1)
Quarter: 2014Q1

REPORT INFORMATION
  Report Type: Spontaneous
  Country: US (occurrence: US)
  Receive Date: 20140320
  Receipt Date: 20140320
  Transmission Date: 20141002
  Serious: Yes (Other)
  Sender: FDA-Public Use
  Company Number: US-OTSUKA-US-2014-10502

PATIENT
  Sex: Male
  Weight: 145.1 kg

DRUGS (6)
  1. ABILIFY MAINTENA [Suspect]
     Indication: BIPOLAR DISORDER
     Dosage: 400 MG MILLIGRAM(S), Q28 DAYS
     Route: 030
     Dates: start: 201308, end: 201401
  2. ABILIFY MAINTENA [Suspect]
     Indication: SCHIZOAFFECTIVE DISORDER
     Dosage: 300 MG MILLIGRAM(S), Q28 DAYS
     Route: 030
     Dates: start: 201402
  3. SEROQUEL [Concomitant]
     Indication: PRODUCT USED FOR UNKNOWN INDICATION
     Dosage: UNK
  4. KLONOPIN [Concomitant]
     Indication: PRODUCT USED FOR UNKNOWN INDICATION
     Dosage: UNK
  5. COGENTIN [Concomitant]
     Indication: PRODUCT USED FOR UNKNOWN INDICATION
     Dosage: UNK
  6. WELLBUTRIN [Concomitant]
     Indication: PRODUCT USED FOR UNKNOWN INDICATION

REACTIONS (5)
  - Depression [Unknown]
  - Off label use [Unknown]
  - Weight increased [Unknown]
  - Restless legs syndrome [Unknown]
  - Emotional disorder [Unknown]
